FAERS Safety Report 9564682 (Version 1)
Quarter: 2013Q3

REPORT INFORMATION
  Report Type: Spontaneous
  Country: US (occurrence: US)
  Receive Date: 20130930
  Receipt Date: 20130930
  Transmission Date: 20140515
  Serious: No
  Sender: FDA-Public Use
  Company Number: US-PFIZER INC-2013279776

PATIENT
  Age: 69 Year
  Sex: Female
  Weight: 95.24 kg

DRUGS (15)
  1. LYRICA [Suspect]
     Indication: DIABETIC NEUROPATHY
     Dosage: 75 MG, 2X/DAY
     Route: 048
     Dates: start: 2013
  2. FUROSEMIDE [Concomitant]
     Indication: FLUID RETENTION
     Dosage: 40 MG, 2X/DAY
     Route: 048
  3. FUROSEMIDE [Concomitant]
     Indication: LOCAL SWELLING
     Dosage: 60 MG, 2X/DAY
     Route: 048
  4. FUROSEMIDE [Concomitant]
     Indication: LIMB DISCOMFORT
  5. OMEPRAZOLE [Concomitant]
     Dosage: 20 MG, 2X/DAY
  6. METRONIDAZOLE [Concomitant]
     Dosage: 250 MG, 1X/DAY
  7. LACTULOSE [Concomitant]
     Dosage: UNK, 3X/DAY
  8. MIRALAX [Concomitant]
     Dosage: 1 TEASPOON SYRUP, AS NEEDED
     Route: 048
  9. LEVEMIR [Concomitant]
     Dosage: 20 UNITS, 1X/DAY
  10. HUMALOG [Concomitant]
     Dosage: 15 UNITS, 2X/DAY
  11. ZINC [Concomitant]
     Dosage: 50 MG, UNK
  12. SPIRONOLACTONE [Concomitant]
     Dosage: 100 MG, 3X/DAY
  13. MAGNESIUM [Concomitant]
     Dosage: 500 MG, 2X/DAY
  14. NEOMYCIN [Concomitant]
     Dosage: 5 MG, 1X/DAY
  15. LEVOTHYROXINE [Concomitant]
     Dosage: 112 UG, 1X/DAY

REACTIONS (1)
  - Drug ineffective [Unknown]
